FAERS Safety Report 15665479 (Version 2)
Quarter: 2018Q4

REPORT INFORMATION
  Report Type: Spontaneous
  Country: US (occurrence: US)
  Receive Date: 20181128
  Receipt Date: 20181203
  Transmission Date: 20190205
  Serious: No
  Sender: FDA-Public Use
  Company Number: US-UNITED THERAPEUTICS-UNT-2018-019611

PATIENT
  Age: 50 Year
  Sex: Female
  Weight: 49.43 kg

DRUGS (1)
  1. TYVASO [Suspect]
     Active Substance: TREPROSTINIL
     Indication: PULMONARY ARTERIAL HYPERTENSION
     Dosage: 18-54 MICROGRAMS, QID
     Dates: start: 20181114, end: 20181124

REACTIONS (9)
  - Dyspnoea at rest [Unknown]
  - Oropharyngeal pain [Unknown]
  - Restlessness [Unknown]
  - Headache [Unknown]
  - Tremor [Unknown]
  - Vertigo [Unknown]
  - Hyperhidrosis [Unknown]
  - Decreased appetite [Unknown]
  - Insomnia [Unknown]

NARRATIVE: CASE EVENT DATE: 201811
